FAERS Safety Report 18605945 (Version 1)
Quarter: 2020Q4

REPORT INFORMATION
  Report Type: Report from Study
  Country: GR (occurrence: GR)
  Receive Date: 20201211
  Receipt Date: 20201211
  Transmission Date: 20210114
  Serious: Yes (Other)
  Sender: FDA-Public Use
  Company Number: GR-ELI_LILLY_AND_COMPANY-GR202012001872

PATIENT
  Age: 60 Year
  Sex: Female

DRUGS (4)
  1. FORSTEO [Suspect]
     Active Substance: TERIPARATIDE
     Indication: OSTEOPOROSIS
     Dosage: 20 UG, DAILY
     Route: 058
     Dates: start: 201912, end: 202011
  2. MAGNESIUM [Concomitant]
     Active Substance: MAGNESIUM
     Indication: COCCYDYNIA
     Dosage: 1 DOSAGE FORM, DAILY
  3. ANTORCIN [Concomitant]
     Active Substance: ATORVASTATIN CALCIUM
     Indication: BLOOD CHOLESTEROL ABNORMAL
     Dosage: 1 DOSAGE FORM, DAILY
  4. VITAMIN D NOS [Concomitant]
     Active Substance: VITAMIN D NOS
     Indication: OSTEOPOROSIS
     Dosage: 1 DOSAGE FORM, DAILY

REACTIONS (1)
  - Blood alkaline phosphatase [Unknown]
